FAERS Safety Report 23813585 (Version 6)
Quarter: 2024Q4

REPORT INFORMATION
  Report Type: Spontaneous
  Country: US (occurrence: US)
  Receive Date: 20240503
  Receipt Date: 20241217
  Transmission Date: 20250115
  Serious: No
  Sender: PFIZER
  Company Number: US-PFIZER INC-202400098518

PATIENT
  Age: 23 Year
  Sex: Female

DRUGS (1)
  1. GENOTROPIN [Suspect]
     Active Substance: SOMATROPIN
     Dosage: 0.4 MG DAILY

REACTIONS (4)
  - Drug dose omission by device [Unknown]
  - Device physical property issue [Unknown]
  - Device leakage [Unknown]
  - Device malfunction [Unknown]
